FAERS Safety Report 8627742 (Version 2)
Quarter: 2013Q3

REPORT INFORMATION
  Report Type: Report from Study
  Country: FR (occurrence: FR)
  Receive Date: 20120621
  Receipt Date: 20130809
  Transmission Date: 20140515
  Serious: Yes (Hospitalization)
  Sender: FDA-Public Use
  Company Number: FR-ASTELLAS-2012EU004243

PATIENT
  Sex: Male
  Weight: 98 kg

DRUGS (9)
  1. TACROLIMUS SYSTEMIC [Suspect]
     Indication: RENAL TRANSPLANT
     Dosage: 3 MG, UID/QD
     Route: 048
     Dates: start: 20110823, end: 20110909
  2. MYCOPHENOLATE MOFETIL [Suspect]
     Indication: RENAL TRANSPLANT
     Dosage: 2 G, UID/QD
     Route: 048
     Dates: start: 20080923
  3. CORTANCYL [Concomitant]
     Dosage: 7.5 MG, UNKNOWN/D
     Route: 048
     Dates: start: 20080923
  4. LESCOL [Concomitant]
     Dosage: 20 MG, UID/QD
     Route: 048
  5. TOPALGIC                           /00599202/ [Concomitant]
     Dosage: 50 MG, BID
     Route: 048
     Dates: start: 20090928
  6. INEXIUM                            /01479302/ [Concomitant]
     Dosage: 40 MG, UNKNOWN/D
     Route: 048
  7. IDEOS [Concomitant]
     Dosage: 500 MG, UNKNOWN/D
     Route: 048
  8. DOLIPRANE [Concomitant]
     Dosage: 1 G, TID
     Route: 065
  9. KAYEXALATE [Concomitant]
     Dosage: 1 DF, UNKNOWN/D
     Route: 065

REACTIONS (1)
  - HLA marker study positive [Recovered/Resolved]
